FAERS Safety Report 8903802 (Version 2)
Quarter: 2012Q4

REPORT INFORMATION
  Report Type: 
  Country: US (occurrence: US)
  Receive Date: 20121112
  Receipt Date: 20121128
  Transmission Date: 20130627
  Serious: No
  Sender: FDA-Public Use
  Company Number: US-PFIZER INC-2012277303

PATIENT
  Age: 51 Year
  Sex: Male
  Weight: 74.83 kg

DRUGS (2)
  1. VIAGRA [Suspect]
     Indication: SEXUAL DYSFUNCTION
     Dosage: 50 mg, UNK
     Route: 048
     Dates: start: 2012
  2. ALEVE [Suspect]
     Indication: HEADACHE
     Dosage: UNK
     Route: 048

REACTIONS (5)
  - Headache [Recovered/Resolved]
  - Orgasm abnormal [Unknown]
  - Insomnia [Unknown]
  - Drug effect decreased [Unknown]
  - Drug ineffective [Unknown]
